FAERS Safety Report 4727541-1 (Version None)
Quarter: 2005Q3

REPORT INFORMATION
  Report Type: 
  Country: None (occurrence: None)
  Receive Date: 20050728
  Receipt Date: 20050718
  Transmission Date: 20060218
  Serious: Yes (Life-Threatening)
  Sender: FDA-Public Use
  Company Number: TH-BRISTOL-MYERS SQUIBB COMPANY-13043971

PATIENT
  Sex: Female

DRUGS (2)
  1. APROVEL [Suspect]
     Route: 048
  2. LIPITOR [Concomitant]
     Indication: HYPERLIPIDAEMIA

REACTIONS (2)
  - ANAEMIA [None]
  - RENAL IMPAIRMENT [None]
